FAERS Safety Report 11101084 (Version 5)
Quarter: 2025Q1

REPORT INFORMATION
  Report Type: Spontaneous
  Country: US (occurrence: US)
  Receive Date: 20150508
  Receipt Date: 20250131
  Transmission Date: 20250409
  Serious: Yes (Death, Other)
  Sender: PURDUE
  Company Number: US-PURDUE-USA-2015-0123232

PATIENT
  Age: 57 Year
  Sex: Male

DRUGS (2)
  1. MORPHINE SULFATE [Suspect]
     Active Substance: MORPHINE SULFATE
     Indication: Product used for unknown indication
     Route: 042
  2. DILAUDID [Suspect]
     Active Substance: HYDROMORPHONE HYDROCHLORIDE
     Indication: Product used for unknown indication
     Route: 042

REACTIONS (9)
  - Peritonitis [Fatal]
  - Respiratory arrest [Fatal]
  - Intestinal gangrene [Unknown]
  - Septic shock [Unknown]
  - Extra dose administered [Unknown]
  - Seizure [Unknown]
  - Agitation [Unknown]
  - Restlessness [Unknown]
  - Incoherent [Unknown]
